FAERS Safety Report 15213727 (Version 23)
Quarter: 2021Q2

REPORT INFORMATION
  Report Type: Spontaneous
  Country: US (occurrence: US)
  Receive Date: 20180730
  Receipt Date: 20210629
  Transmission Date: 20210716
  Serious: No
  Sender: FDA-Public Use
  Company Number: US-SA-2018SA012426

PATIENT
  Age: 70 Year
  Sex: Female
  Weight: 49 kg

DRUGS (5)
  1. AVAPRO [Suspect]
     Active Substance: IRBESARTAN
     Indication: ESSENTIAL HYPERTENSION
     Dosage: 300 MG, QD
     Route: 048
  2. CLARITIN [Concomitant]
     Active Substance: LORATADINE
     Indication: SEASONAL ALLERGY
     Dosage: UNK
  3. AVAPRO [Suspect]
     Active Substance: IRBESARTAN
     Dosage: 300 MG
     Route: 048
     Dates: start: 20190602
  4. AVAPRO [Suspect]
     Active Substance: IRBESARTAN
     Dosage: 300 MG
     Route: 065
  5. AVAPRO [Suspect]
     Active Substance: IRBESARTAN
     Dosage: 150 MG, QD
     Route: 048
     Dates: start: 20200510

REACTIONS (31)
  - Hypertension [Not Recovered/Not Resolved]
  - Product storage error [Unknown]
  - Nervousness [Recovered/Resolved]
  - Chest discomfort [Not Recovered/Not Resolved]
  - Muscle tightness [Not Recovered/Not Resolved]
  - Asthenia [Recovered/Resolved]
  - Nausea [Unknown]
  - Arthralgia [Unknown]
  - Back pain [Unknown]
  - Suspected counterfeit product [Not Recovered/Not Resolved]
  - Intentional product misuse [Unknown]
  - Illness [Unknown]
  - Chest discomfort [Unknown]
  - Drug ineffective [Unknown]
  - Burning sensation [Not Recovered/Not Resolved]
  - Headache [Not Recovered/Not Resolved]
  - Impaired quality of life [Unknown]
  - Physical product label issue [Unknown]
  - Feeling abnormal [Unknown]
  - Headache [Unknown]
  - Hypoaesthesia [Not Recovered/Not Resolved]
  - Product physical issue [Unknown]
  - Agitation [Recovered/Resolved]
  - Fatigue [Not Recovered/Not Resolved]
  - Pain [Not Recovered/Not Resolved]
  - Abdominal discomfort [Unknown]
  - Dizziness [Unknown]
  - Ocular hyperaemia [Not Recovered/Not Resolved]
  - Paraesthesia [Not Recovered/Not Resolved]
  - Tinnitus [Unknown]
  - Wrong technique in product usage process [Unknown]

NARRATIVE: CASE EVENT DATE: 20190527
